FAERS Safety Report 17840813 (Version 1)
Quarter: 2020Q2

REPORT INFORMATION
  Report Type: Spontaneous
  Country: NL (occurrence: NL)
  Receive Date: 20200529
  Receipt Date: 20200529
  Transmission Date: 20200714
  Serious: Yes (Other)
  Sender: FDA-Public Use
  Company Number: NL-TEVA-2020-NL-1240817

PATIENT
  Age: 75 Year
  Sex: Female
  Weight: 62 kg

DRUGS (6)
  1. PREGABALINE [Suspect]
     Active Substance: PREGABALIN
     Indication: PAIN
     Dosage: 300 MILLIGRAM DAILY; 2X PER DAY 1 CAPSULE
     Dates: start: 20200227, end: 20200325
  2. LISINOPRIL. [Concomitant]
     Active Substance: LISINOPRIL
     Dosage: 20 MG (MILLIGRAM)
  3. LIXIANA (EDOXABAN) [Concomitant]
     Active Substance: EDOXABAN TOSYLATE
     Dosage: 60 MG (MILLIGRAM)
  4. MAAGZUURTABLET PANTOPRAZOL SAM (PANTOPRAZOL) [Concomitant]
     Dosage: 40 MG
  5. METOPROLOLSUCCINAAT [Concomitant]
     Active Substance: METOPROLOL SUCCINATE
     Dosage: 100 MG
  6. OXYCODONE [Suspect]
     Active Substance: OXYCODONE
     Indication: PAIN
     Dosage: 20 MILLIGRAM DAILY; 2X PER DAY 1 TABLET
     Dates: start: 20200316, end: 20200325

REACTIONS (6)
  - Decreased appetite [Recovered/Resolved]
  - Retching [Recovered/Resolved]
  - Nausea [Recovered/Resolved]
  - Joint swelling [Recovered/Resolved]
  - Respiratory distress [Recovered/Resolved]
  - Sleep attacks [Recovered/Resolved]

NARRATIVE: CASE EVENT DATE: 20200325
